FAERS Safety Report 12392928 (Version 1)
Quarter: 2016Q2

REPORT INFORMATION
  Report Type: Spontaneous
  Country: US (occurrence: US)
  Receive Date: 20160523
  Receipt Date: 20160523
  Transmission Date: 20160815
  Serious: Yes (Death, Other)
  Sender: FDA-Public Use
  Company Number: US-ELI_LILLY_AND_COMPANY-US201605005866

PATIENT
  Age: 63 Year
  Sex: Female

DRUGS (3)
  1. LANTUS [Concomitant]
     Active Substance: INSULIN GLARGINE
     Indication: PRODUCT USED FOR UNKNOWN INDICATION
  2. DEXAMETHASONE. [Concomitant]
     Active Substance: DEXAMETHASONE
     Indication: PRODUCT USED FOR UNKNOWN INDICATION
  3. HUMALOG [Suspect]
     Active Substance: INSULIN LISPRO
     Indication: TYPE 1 DIABETES MELLITUS
     Dosage: UNK UNK, OTHER
     Route: 065
     Dates: start: 2001

REACTIONS (17)
  - Crohn^s disease [Unknown]
  - Upper limb fracture [Unknown]
  - Small cell carcinoma [Unknown]
  - Fall [Unknown]
  - Fall [Unknown]
  - Lower respiratory tract infection [Unknown]
  - Death [Fatal]
  - Blood pressure decreased [Unknown]
  - Heart rate increased [Unknown]
  - Wrist fracture [Unknown]
  - Seizure [Unknown]
  - Eye contusion [Unknown]
  - Metastases to central nervous system [Unknown]
  - Seizure [Unknown]
  - Diabetes mellitus inadequate control [Unknown]
  - Wrist fracture [Unknown]
  - Fall [Unknown]

NARRATIVE: CASE EVENT DATE: 201401
